FAERS Safety Report 6729530-4 (Version None)
Quarter: 2010Q2

REPORT INFORMATION
  Report Type: 
  Country: None (occurrence: None)
  Receive Date: 20100518
  Receipt Date: 20100503
  Transmission Date: 20101027
  Serious: No
  Sender: FDA-Public Use
  Company Number: US-BIOGENIDEC-2010BI015805

PATIENT
  Age: 54 Year
  Sex: Female

DRUGS (7)
  1. TYSABRI [Suspect]
     Indication: MULTIPLE SCLEROSIS
     Dosage: DOSE UNIT:1
     Route: 042
     Dates: start: 20070101
  2. AMPYRA [Concomitant]
     Route: 042
     Dates: start: 20100408
  3. SYNTHROID [Concomitant]
  4. PROZAC [Concomitant]
  5. DITROPAN [Concomitant]
  6. URECHOLINE [Concomitant]
  7. PRILOSEC [Concomitant]

REACTIONS (1)
  - MULTIPLE SCLEROSIS [None]
